FAERS Safety Report 14621266 (Version 6)
Quarter: 2022Q1

REPORT INFORMATION
  Report Type: Other
  Country: GB (occurrence: GB)
  Receive Date: 20180310
  Receipt Date: 20220329
  Transmission Date: 20220423
  Serious: Yes (Life-Threatening, Disabling, Other)
  Sender: FDA-Public Use
  Company Number: None

PATIENT
  Age: 18 Year
  Sex: Male
  Weight: 70 kg

DRUGS (6)
  1. SERTRALINE [Suspect]
     Active Substance: SERTRALINE HYDROCHLORIDE
     Indication: Depression
     Dosage: 50 MG, UNK
     Route: 048
     Dates: start: 20171113, end: 20171115
  2. POLYETHYLENE GLYCOL 3350\POTASSIUM CHLORIDE\SODIUM BICARBONATE\SODIUM [Concomitant]
     Active Substance: POLYETHYLENE GLYCOL 3350\POTASSIUM CHLORIDE\SODIUM BICARBONATE\SODIUM CHLORIDE
     Indication: Product used for unknown indication
     Dosage: UNK
     Route: 065
  3. ALVERINE CITRATE [Concomitant]
     Active Substance: ALVERINE CITRATE
     Indication: Product used for unknown indication
     Dosage: UNK
     Route: 065
  4. ACETAMINOPHEN [Concomitant]
     Active Substance: ACETAMINOPHEN
     Indication: Product used for unknown indication
     Dosage: UNK
     Route: 065
  5. SIMETHICONE (DIMETHICONE) [Concomitant]
     Active Substance: DIMETHICONE
     Indication: Product used for unknown indication
     Dosage: UNK
     Route: 065
  6. IBUPROFEN [Concomitant]
     Active Substance: IBUPROFEN
     Indication: Product used for unknown indication
     Dosage: UNK
     Route: 065

REACTIONS (15)
  - Muscle spasms [Recovering/Resolving]
  - Resting tremor [Recovering/Resolving]
  - Anxiety [Recovering/Resolving]
  - Agitation [Recovered/Resolved]
  - Akathisia [Unknown]
  - Restlessness [Recovered/Resolved]
  - Urinary incontinence [Recovering/Resolving]
  - Suicidal ideation [Recovered/Resolved with Sequelae]
  - Hyperhidrosis [Recovered/Resolved]
  - Paranoia [Recovered/Resolved]
  - Insomnia [Recovered/Resolved with Sequelae]
  - Decreased appetite [Recovered/Resolved]
  - Hallucination, visual [Recovered/Resolved]
  - Tremor [Recovered/Resolved with Sequelae]
  - Confusional state [Recovered/Resolved]

NARRATIVE: CASE EVENT DATE: 20171113
